FAERS Safety Report 10501403 (Version 1)
Quarter: 2014Q4

REPORT INFORMATION
  Report Type: Spontaneous
  Country: US (occurrence: None)
  Receive Date: 20141006
  Receipt Date: 20141006
  Transmission Date: 20150528
  Serious: Yes (Life-Threatening, Hospitalization)
  Sender: FDA-Public Use
  Company Number: None

PATIENT
  Age: 67 Year
  Sex: Male
  Weight: 105.5 kg

DRUGS (2)
  1. GADOTERIDOL [Suspect]
     Active Substance: GADOTERIDOL
     Indication: SCAN WITH CONTRAST
     Route: 042
     Dates: start: 20140723, end: 20140723
  2. GADOTERIDOL [Suspect]
     Active Substance: GADOTERIDOL
     Indication: NUCLEAR MAGNETIC RESONANCE IMAGING
     Route: 042
     Dates: start: 20140723, end: 20140723

REACTIONS (2)
  - Anaphylactic reaction [None]
  - Contrast media allergy [None]

NARRATIVE: CASE EVENT DATE: 20140723
